FAERS Safety Report 7033501-0 (Version None)
Quarter: 2010Q4

REPORT INFORMATION
  Report Type: 
  Country: None (occurrence: None)
  Receive Date: 20101007
  Receipt Date: 20100922
  Transmission Date: 20110411
  Serious: Yes (Hospitalization, Other)
  Sender: FDA-Public Use
  Company Number: PHHY2009CA45186

PATIENT
  Sex: Female

DRUGS (13)
  1. EXJADE [Suspect]
     Indication: MYELODYSPLASTIC SYNDROME
     Dosage: 1000 MG, QD
     Route: 048
     Dates: start: 20091001
  2. EXJADE [Suspect]
     Indication: IRON OVERLOAD
     Dosage: 500 MG, QD
     Route: 048
  3. EXJADE [Suspect]
     Dosage: 1000 MG, QD
     Route: 048
  4. EXJADE [Suspect]
     Dosage: 500 MG, QD
     Route: 048
  5. EXJADE [Suspect]
     Dosage: 1000 MG, QD
     Route: 048
     Dates: end: 20100915
  6. NORVASC [Concomitant]
  7. PLAVIX [Concomitant]
  8. NEO-CAL D [Concomitant]
     Indication: PROPHYLAXIS
  9. AMLODIPINE [Concomitant]
  10. GLUCOSAMINE /CHONDROITIN [Concomitant]
     Dosage: 900 MG, BID
  11. FOSAMAX [Concomitant]
     Indication: PROPHYLAXIS
     Dosage: 70 MG, QW
  12. PREVACID [Concomitant]
     Dosage: 30 MG
     Route: 048
  13. ATIVAN [Concomitant]
     Dosage: AT NIGHT TIME

REACTIONS (11)
  - ABDOMINAL PAIN UPPER [None]
  - ARTHRALGIA [None]
  - DIARRHOEA [None]
  - HEADACHE [None]
  - HIP FRACTURE [None]
  - HIP SURGERY [None]
  - LACTOSE INTOLERANCE [None]
  - LIVER FUNCTION TEST ABNORMAL [None]
  - SERUM FERRITIN INCREASED [None]
  - VOMITING [None]
  - WEIGHT DECREASED [None]
